FAERS Safety Report 7546370-7 (Version None)
Quarter: 2011Q2

REPORT INFORMATION
  Report Type: 
  Country: None (occurrence: None)
  Receive Date: 20110614
  Receipt Date: 20090306
  Transmission Date: 20111010
  Serious: Yes (Hospitalization)
  Sender: FDA-Public Use
  Company Number: PHHY2008JP19439

PATIENT
  Sex: Male
  Weight: 55 kg

DRUGS (10)
  1. RED BLOOD CELLS, CONCENTRATED [Concomitant]
     Dosage: 2 UNITS
     Dates: start: 20080724, end: 20090305
  2. RED BLOOD CELLS, CONCENTRATED [Concomitant]
     Dosage: 4 UNITS
     Dates: start: 20081120
  3. RED BLOOD CELLS, CONCENTRATED [Concomitant]
     Dosage: 4 U, BIW
     Dates: start: 20090108, end: 20090305
  4. ALDACTONE [Concomitant]
     Route: 048
  5. EXJADE [Suspect]
     Indication: IRON OVERLOAD
     Dosage: 100 MG, QD
     Route: 048
     Dates: start: 20080725, end: 20080728
  6. THYRADIN [Concomitant]
     Route: 048
  7. SULFAMETHOXAZOLE [Concomitant]
     Route: 048
  8. LASIX [Concomitant]
     Route: 048
  9. RED BLOOD CELLS, CONCENTRATED [Concomitant]
     Dosage: 4 UNITS
     Dates: start: 20081218
  10. MAGMITT KENEI [Concomitant]
     Route: 048

REACTIONS (3)
  - C-REACTIVE PROTEIN INCREASED [None]
  - PYREXIA [None]
  - BACTERIAL INFECTION [None]
